FAERS Safety Report 5569995-7 (Version None)
Quarter: 2007Q4

REPORT INFORMATION
  Report Type: 
  Country: None (occurrence: None)
  Receive Date: 20071220
  Receipt Date: 20071213
  Transmission Date: 20080405
  Serious: Yes (Other)
  Sender: FDA-Public Use
  Company Number: CH-PFIZER INC-2007105814

PATIENT
  Sex: Female

DRUGS (3)
  1. ZYRTEC [Suspect]
     Indication: HYPERSENSITIVITY
     Dosage: DAILY DOSE:10MG
     Route: 048
  2. SYMBICORT [Concomitant]
     Indication: HYPERSENSITIVITY
     Route: 055
  3. EMEDASTINE [Concomitant]
     Indication: HYPERSENSITIVITY

REACTIONS (2)
  - ABORTION [None]
  - DRUG EXPOSURE DURING PREGNANCY [None]
